FAERS Safety Report 5335579-9 (Version None)
Quarter: 2007Q2

REPORT INFORMATION
  Report Type: 
  Country: None (occurrence: None)
  Receive Date: 20070526
  Receipt Date: 20070517
  Transmission Date: 20071010
  Serious: Yes (Hospitalization)
  Sender: FDA-Public Use
  Company Number: GB-PFIZER INC-2007041079

PATIENT
  Sex: Female

DRUGS (1)
  1. PREGABALIN [Suspect]
     Indication: NEUROPATHY

REACTIONS (2)
  - ENDOCARDITIS [None]
  - RENAL FAILURE ACUTE [None]
